FAERS Safety Report 22345731 (Version 1)
Quarter: 2023Q2

REPORT INFORMATION
  Report Type: Report from Study
  Country: US (occurrence: US)
  Receive Date: 20230519
  Receipt Date: 20230519
  Transmission Date: 20230721
  Serious: Yes (Other)
  Sender: FDA-Public Use
  Company Number: US-MYLANLABS-2021M1051605

PATIENT
  Age: 35 Year
  Sex: Female
  Weight: 70.31 kg

DRUGS (4)
  1. GLATIRAMER ACETATE [Suspect]
     Active Substance: GLATIRAMER ACETATE
     Indication: Relapsing-remitting multiple sclerosis
     Dosage: 40 MILLIGRAM, 3XW
     Route: 058
     Dates: start: 20210810, end: 20210812
  2. GLATIRAMER ACETATE [Suspect]
     Active Substance: GLATIRAMER ACETATE
     Indication: Multiple sclerosis
     Dosage: 40 MILLIGRAM, 3XW
     Route: 058
     Dates: start: 20220713
  3. GLATIRAMER ACETATE [Suspect]
     Active Substance: GLATIRAMER ACETATE
     Dosage: 40 MILLIGRAM, 3XW(3 WEEKLY)
     Route: 058
  4. BENADRYL [Concomitant]
     Active Substance: DIPHENHYDRAMINE HYDROCHLORIDE
     Dosage: UNK
     Route: 065

REACTIONS (19)
  - Multiple sclerosis [Unknown]
  - Discomfort [Unknown]
  - Paraesthesia oral [Unknown]
  - Sinusitis [Unknown]
  - Menstruation delayed [Unknown]
  - Injection site pain [Unknown]
  - Injection site rash [Unknown]
  - Injection site urticaria [Unknown]
  - Injection site erythema [Unknown]
  - Injection site mass [Unknown]
  - Palpitations [Unknown]
  - Anxiety [Unknown]
  - Urticaria [Unknown]
  - Injection site swelling [Unknown]
  - Injection site bruising [Unknown]
  - Livedo reticularis [Unknown]
  - Injection site induration [Unknown]
  - Injection site discolouration [Unknown]
  - COVID-19 [Unknown]

NARRATIVE: CASE EVENT DATE: 20220911
